FAERS Safety Report 11105073 (Version 1)
Quarter: 2015Q2

REPORT INFORMATION
  Report Type: Spontaneous
  Country: US (occurrence: US)
  Receive Date: 20150511
  Receipt Date: 20150511
  Transmission Date: 20150821
  Serious: Yes (Other)
  Sender: FDA-Public Use
  Company Number: US-CELGENEUS-USA-2015051453

PATIENT
  Age: 85 Year
  Sex: Male
  Weight: 77.1 kg

DRUGS (2)
  1. POMALYST [Suspect]
     Active Substance: POMALIDOMIDE
     Indication: PLASMA CELL MYELOMA
     Dosage: 4 MILLIGRAM
     Route: 048
     Dates: start: 201501
  2. ESBRIET [Suspect]
     Active Substance: PIRFENIDONE
     Indication: BRONCHIAL DISORDER
     Route: 065
     Dates: start: 201501

REACTIONS (3)
  - Fatigue [Recovered/Resolved]
  - Bronchial disorder [Recovered/Resolved]
  - Dizziness [Recovered/Resolved]

NARRATIVE: CASE EVENT DATE: 201501
